FAERS Safety Report 4550516-2 (Version None)
Quarter: 2004Q4

REPORT INFORMATION
  Report Type: 
  Country: None (occurrence: None)
  Receive Date: 20041227
  Receipt Date: 20041115
  Transmission Date: 20050328
  Serious: No
  Sender: FDA-Public Use
  Company Number: 04P-163-0280642-00

PATIENT
  Age: 75 Year
  Sex: Female
  Weight: 66.2252 kg

DRUGS (14)
  1. HUMIRA [Suspect]
     Indication: RHEUMATOID ARTHRITIS
     Dosage: 40 MG, 1 IN 1 D, SUBCUTANEOUS
     Route: 058
     Dates: start: 20030101
  2. HYDRALAZINE [Concomitant]
  3. LEOSTESIN-NORADRENALIN [Concomitant]
  4. LEVOTHYROXINE SODIUM [Concomitant]
  5. CLONIDINE [Concomitant]
  6. CLONAZEPAM [Concomitant]
  7. METOPROLOL SUCCINATE [Concomitant]
  8. SIMVASTATIN [Concomitant]
  9. ACETAMINOPHEN [Concomitant]
  10. HUMOLOG INSULIN [Concomitant]
  11. NOVALOG INSULIN [Concomitant]
  12. INSULIN GLARGINE [Concomitant]
  13. B12 COMPLEX [Concomitant]
  14. CALCIUM AND D [Concomitant]

REACTIONS (2)
  - COUGH [None]
  - SINUSITIS [None]
